FAERS Safety Report 8777651 (Version 4)
Quarter: 2012Q4

REPORT INFORMATION
  Report Type: 
  Country: JP (occurrence: JP)
  Receive Date: 20120910
  Receipt Date: 20121211
  Transmission Date: 20130627
  Serious: Yes (Hospitalization, Other)
  Sender: FDA-Public Use
  Company Number: JP-ELI_LILLY_AND_COMPANY-JP201208001337

PATIENT
  Sex: Female

DRUGS (18)
  1. ZYPREXA [Suspect]
     Dosage: 10 mg, qd
     Route: 064
     Dates: start: 20120507, end: 20120520
  2. ZYPREXA [Suspect]
     Dosage: 10 mg, qd
     Route: 064
     Dates: start: 20120507, end: 20120520
  3. ZYPREXA [Suspect]
     Dosage: 15 mg, qd
     Route: 064
     Dates: start: 20120521, end: 20120618
  4. ZYPREXA [Suspect]
     Dosage: 15 mg, qd
     Route: 064
     Dates: start: 20120521, end: 20120618
  5. ZYPREXA [Suspect]
     Dosage: 20 mg, qd
     Route: 064
     Dates: start: 20120619, end: 20120723
  6. ZYPREXA [Suspect]
     Dosage: 20 mg, qd
     Route: 064
     Dates: start: 20120619, end: 20120723
  7. RISPERIDONE [Concomitant]
     Dosage: UNK
     Route: 064
     Dates: start: 20120619, end: 20120723
  8. RISPERIDONE [Concomitant]
     Dosage: UNK
     Route: 064
     Dates: start: 20120619, end: 20120723
  9. AMOBAN [Concomitant]
     Dosage: UNK
     Route: 064
     Dates: start: 20120507, end: 20120724
  10. AMOBAN [Concomitant]
     Dosage: UNK
     Route: 064
     Dates: start: 20120507, end: 20120724
  11. ABILIFY [Concomitant]
     Dosage: UNK
     Route: 064
     Dates: start: 20120420, end: 20120506
  12. ABILIFY [Concomitant]
     Dosage: UNK
     Route: 064
     Dates: start: 20120420, end: 20120506
  13. ROHYPNOL [Concomitant]
     Dosage: UNK
     Route: 064
     Dates: start: 20120507, end: 20120610
  14. ROHYPNOL [Concomitant]
     Dosage: UNK
     Route: 064
     Dates: start: 20120507, end: 20120610
  15. ROHYPNOL [Concomitant]
     Dosage: UNK
     Route: 064
     Dates: start: 20120611
  16. ROHYPNOL [Concomitant]
     Dosage: UNK
     Route: 064
     Dates: start: 20120611
  17. ROHYPNOL [Concomitant]
     Dosage: UNK
     Route: 064
     Dates: end: 20120723
  18. ROHYPNOL [Concomitant]
     Dosage: UNK
     Route: 064
     Dates: end: 20120723

REACTIONS (16)
  - Drug withdrawal syndrome neonatal [Unknown]
  - Feeding disorder neonatal [Recovering/Resolving]
  - Hypocalcaemia [Recovered/Resolved]
  - Foetal exposure during pregnancy [Recovered/Resolved]
  - Tremor [Unknown]
  - Irritability [Unknown]
  - Hypertonia neonatal [Recovering/Resolving]
  - Macrosomia [Unknown]
  - Hyperreflexia [Unknown]
  - Agitation neonatal [Not Recovered/Not Resolved]
  - Opisthotonus [Unknown]
  - Somnolence neonatal [Unknown]
  - Vomiting neonatal [Unknown]
  - Neonatal tachypnoea [Unknown]
  - Hyperhidrosis [Unknown]
  - Constipation [Recovering/Resolving]
